FAERS Safety Report 21656547 (Version 2)
Quarter: 2023Q1

REPORT INFORMATION
  Report Type: Report from Study
  Country: BR (occurrence: BR)
  Receive Date: 20221129
  Receipt Date: 20230105
  Transmission Date: 20230417
  Serious: Yes (Hospitalization)
  Sender: FDA-Public Use
  Company Number: BR-MYLANLABS-2022M1132621

PATIENT
  Age: 38 Year
  Sex: Male
  Weight: 72 kg

DRUGS (4)
  1. HYDROCORTISONE [Suspect]
     Active Substance: HYDROCORTISONE
     Indication: Allergy prophylaxis
     Dosage: 500 MILLIGRAM (ONLY 30MIN BEFORE ANTIVENOM)
     Route: 042
     Dates: start: 20160923, end: 20160923
  2. CIMETIDINE [Suspect]
     Active Substance: CIMETIDINE
     Indication: Allergy prophylaxis
     Dosage: 300 MILLIGRAM (ONLY 30MIN BEFORE ANTIVENOM)
     Route: 042
     Dates: start: 20160923, end: 20160923
  3. DEXCHLORPHENIRAMINE [Suspect]
     Active Substance: DEXCHLORPHENIRAMINE
     Indication: Allergy prophylaxis
     Dosage: 5 MILLIGRAM (ONLY 30MIN BEFORE ANTIVENOM)
     Route: 048
     Dates: start: 20160923, end: 20160923
  4. SALINE [Concomitant]
     Active Substance: SODIUM CHLORIDE
     Indication: Vehicle solution use
     Dosage: 100 MILLILITER (ONLY 30MIN BEFORE ANTIVENOM)
     Route: 065
     Dates: start: 20160923, end: 20160923

REACTIONS (1)
  - Drug ineffective [Recovered/Resolved]

NARRATIVE: CASE EVENT DATE: 20160923
